FAERS Safety Report 8963284 (Version 1)
Quarter: 2012Q4

REPORT INFORMATION
  Report Type: 
  Country: AU (occurrence: AU)
  Receive Date: 20121214
  Receipt Date: 20121214
  Transmission Date: 20130627
  Serious: Yes (Other)
  Sender: FDA-Public Use
  Company Number: AU-009507513-1212AUS004314

PATIENT
  Age: 42 Year
  Sex: Female

DRUGS (10)
  1. MIRTAZAPINE [Suspect]
     Indication: SLEEP DISORDER
     Dosage: 15 mg, qd
     Route: 048
     Dates: start: 20120607, end: 20120608
  2. AMITRIPTYLINE HYDROCHLORIDE [Suspect]
     Indication: PAIN
     Dosage: 20 mg, qd
     Route: 048
     Dates: start: 20120605, end: 20120608
  3. COLOXYL WITH SENNA [Concomitant]
  4. ENOXAPARIN SODIUM [Concomitant]
  5. LACTULOSE [Concomitant]
  6. MEBEVERINE HYDROCHLORIDE [Concomitant]
  7. METAMUCIL [Concomitant]
  8. MOVICOL [Concomitant]
  9. ONDANSETRON HYDROCHLORIDE [Concomitant]
  10. OXYCODONE HYDROCHLORIDE [Concomitant]

REACTIONS (5)
  - Serotonin syndrome [Recovered/Resolved]
  - Diarrhoea [Recovered/Resolved]
  - Blood pressure decreased [Recovered/Resolved]
  - Vomiting [Recovered/Resolved]
  - Tachycardia [Recovered/Resolved]
